FAERS Safety Report 14742201 (Version 1)
Quarter: 2018Q2

REPORT INFORMATION
  Report Type: Spontaneous
  Country: ES (occurrence: ES)
  Receive Date: 20180410
  Receipt Date: 20180410
  Transmission Date: 20180711
  Serious: Yes (Death, Hospitalization)
  Sender: FDA-Public Use
  Company Number: ES-BAYER-2018-068517

PATIENT
  Age: 86 Year
  Sex: Male

DRUGS (8)
  1. METAMIZOL [Concomitant]
     Active Substance: METAMIZOLE SODIUM
     Dosage: 2GR/8H
     Route: 042
  2. PARACETAMOL [Concomitant]
     Active Substance: ACETAMINOPHEN
     Dosage: 1GR/8H
     Route: 042
  3. BEMIPARIN [Interacting]
     Active Substance: BEMIPARIN
     Indication: ATRIAL FIBRILLATION
     Dosage: 5000 UI DIA
     Route: 058
     Dates: start: 20160920, end: 20170615
  4. CARVEDILOL. [Concomitant]
     Active Substance: CARVEDILOL
     Dosage: 6.25 MG, UNK
     Route: 048
  5. BOSENTAN. [Concomitant]
     Active Substance: BOSENTAN
     Dosage: UNK
     Route: 048
  6. ADIRO 100 MG [Suspect]
     Active Substance: ASPIRIN
     Indication: PERIPHERAL ISCHAEMIA
     Dosage: 100 MG, UNK
     Route: 048
     Dates: start: 20160621
  7. PANTOPRAZOLE [Concomitant]
     Active Substance: PANTOPRAZOLE
     Dosage: 40 MG DIA
     Route: 042
  8. AMOXICILINA + CLAVULANICO [Concomitant]
     Active Substance: AMOXICILLIN\CLAVULANIC ACID
     Indication: CHOLECYSTITIS ACUTE
     Dosage: 1 DF, UNK
     Dates: start: 20170606

REACTIONS (1)
  - Retroperitoneal haematoma [Fatal]

NARRATIVE: CASE EVENT DATE: 20170614
